FAERS Safety Report 25471267 (Version 3)
Quarter: 2025Q3

REPORT INFORMATION
  Report Type: Spontaneous
  Country: EU (occurrence: EU)
  Receive Date: 20250624
  Receipt Date: 20250807
  Transmission Date: 20251020
  Serious: No
  Sender: JOHNSON AND JOHNSON
  Company Number: EU-JNJFOC-20250606279

PATIENT

DRUGS (1)
  1. SIMPONI [Suspect]
     Active Substance: GOLIMUMAB
     Indication: Product used for unknown indication
     Route: 003

REACTIONS (4)
  - Device issue [Unknown]
  - Product dose omission issue [Unknown]
  - Off label use [Unknown]
  - Product label issue [Unknown]
